FAERS Safety Report 21370774 (Version 1)
Quarter: 2022Q3

REPORT INFORMATION
  Report Type: Spontaneous
  Country: US (occurrence: US)
  Receive Date: 20220923
  Receipt Date: 20220923
  Transmission Date: 20221027
  Serious: Yes (Hospitalization)
  Sender: FDA-Public Use
  Company Number: US-MYLANLABS-2022M1095996

PATIENT
  Sex: Female

DRUGS (7)
  1. AMIODARONE [Suspect]
     Active Substance: AMIODARONE
     Indication: Atrial tachycardia
     Dosage: 5 MILLIGRAM/KILOGRAM,BOLUS
     Route: 065
  2. AMIODARONE [Suspect]
     Active Substance: AMIODARONE
     Dosage: 15 MILLIGRAM/KILOGRAM, QD,CONTINUOUS INFUSION
     Route: 065
  3. AMIODARONE [Suspect]
     Active Substance: AMIODARONE
     Dosage: 5 MILLIGRAM/KILOGRAM, QD,CONTINUOUS INFUSION
     Route: 065
  4. IVABRADINE [Suspect]
     Active Substance: IVABRADINE
     Indication: Atrial tachycardia
     Dosage: 0.05 MILLIGRAM/KILOGRAM, BID (0.22 MG/DOSE)
     Route: 065
  5. IVABRADINE [Suspect]
     Active Substance: IVABRADINE
     Dosage: 0.5 MILLIGRAM/KILOGRAM (2.2 MG)
     Route: 065
  6. PROCAINAMIDE HYDROCHLORIDE [Suspect]
     Active Substance: PROCAINAMIDE HYDROCHLORIDE
     Indication: Atrial tachycardia
     Dosage: UNK,50 UG/KG/MIN
     Route: 065
  7. ESMOLOL [Concomitant]
     Active Substance: ESMOLOL HYDROCHLORIDE
     Indication: Atrial tachycardia
     Dosage: UNK, HIGH DOSE
     Route: 065

REACTIONS (3)
  - Sinus bradycardia [Recovered/Resolved]
  - Drug ineffective [Unknown]
  - Off label use [Unknown]
